FAERS Safety Report 21204955 (Version 1)
Quarter: 2022Q3

REPORT INFORMATION
  Report Type: Spontaneous
  Country: None (occurrence: US)
  Receive Date: 20220812
  Receipt Date: 20220812
  Transmission Date: 20221027
  Serious: No
  Sender: FDA-Public Use
  Company Number: US-ITALFARMACO SPA-2131757

PATIENT
  Age: 68 Year
  Sex: Female

DRUGS (11)
  1. TIGLUTIK [Suspect]
     Active Substance: RILUZOLE
     Indication: Amyotrophic lateral sclerosis
     Dates: start: 20210823
  2. OMEPRAZOLE AND SODIUM BICARBONATE [Concomitant]
     Active Substance: OMEPRAZOLE\SODIUM BICARBONATE
  3. ADVAIR HFA [Concomitant]
     Active Substance: FLUTICASONE PROPIONATE\SALMETEROL XINAFOATE
  4. GUAIFENESIN [Concomitant]
     Active Substance: GUAIFENESIN
  5. SENNA LEAF [Concomitant]
     Active Substance: SENNA LEAF
  6. SYNTHROID [Concomitant]
     Active Substance: LEVOTHYROXINE SODIUM
  7. DELSYM [Concomitant]
     Active Substance: DEXTROMETHORPHAN
  8. ATIVAN [Concomitant]
     Active Substance: LORAZEPAM
  9. LORAZEPAM [Concomitant]
     Active Substance: LORAZEPAM
  10. CALCIUM\MAGNESIUM [Concomitant]
     Active Substance: CALCIUM\MAGNESIUM
  11. CENTRUM VITAMINTS [Concomitant]

REACTIONS (1)
  - Intestinal obstruction [Unknown]
